FAERS Safety Report 6834241-0 (Version None)
Quarter: 2010Q3

REPORT INFORMATION
  Report Type: 
  Country: None (occurrence: None)
  Receive Date: 20100712
  Receipt Date: 20080228
  Transmission Date: 20110219
  Serious: Yes (Hospitalization, Other)
  Sender: FDA-Public Use
  Company Number: US-PFIZER INC-2007025096

PATIENT
  Sex: Female
  Weight: 53.1 kg

DRUGS (1)
  1. CHANTIX [Suspect]
     Indication: SMOKING CESSATION THERAPY
     Dates: start: 20070320

REACTIONS (13)
  - BED REST [None]
  - CEREBROVASCULAR ACCIDENT [None]
  - CONFUSIONAL STATE [None]
  - CONSTIPATION [None]
  - COUGH [None]
  - DECREASED APPETITE [None]
  - DIZZINESS [None]
  - FLATULENCE [None]
  - INSOMNIA [None]
  - LUNG DISORDER [None]
  - MEDICATION ERROR [None]
  - NAUSEA [None]
  - TRANSIENT ISCHAEMIC ATTACK [None]
